FAERS Safety Report 6040251-6 (Version None)
Quarter: 2009Q1

REPORT INFORMATION
  Report Type: 
  Country: None (occurrence: None)
  Receive Date: 20090116
  Receipt Date: 20080128
  Transmission Date: 20090719
  Serious: No
  Sender: FDA-Public Use
  Company Number: US-BRISTOL-MYERS SQUIBB COMPANY-14055784

PATIENT
  Age: 46 Year
  Sex: Female
  Weight: 63 kg

DRUGS (5)
  1. ABILIFY [Suspect]
     Indication: BIPOLAR DISORDER
     Dosage: DURATION 1 YEAR. 6 MONTHS 20 MG LATER ON TITRATED TO 40 MG.
     Route: 048
  2. LITHIUM [Suspect]
  3. WELLBUTRIN [Concomitant]
  4. LEXAPRO [Concomitant]
  5. LAMICTAL [Concomitant]

REACTIONS (2)
  - TARDIVE DYSKINESIA [None]
  - WEIGHT DECREASED [None]
